FAERS Safety Report 9175573 (Version 1)
Quarter: 2012Q4

REPORT INFORMATION
  Report Type: Report from Study
  Country: US (occurrence: US)
  Receive Date: 20120917
  Receipt Date: 20120917
  Transmission Date: 20130627
  Serious: Yes (Other)
  Sender: FDA-Public Use
  Company Number: US-JNJFOC-20120903530

PATIENT
  Age: 59 None
  Sex: Female
  Weight: 68.04 kg

DRUGS (13)
  1. REMICADE [Suspect]
     Indication: CROHN^S DISEASE
     Route: 042
     Dates: start: 20111013
  2. ESTRADIOL [Concomitant]
     Indication: HORMONE REPLACEMENT THERAPY
     Route: 048
  3. ATORVASTATIN CALCIUM [Concomitant]
     Indication: BLOOD CHOLESTEROL
     Route: 048
  4. ACETAMINOPHEN/CODEINE [Concomitant]
     Indication: PAIN
     Dosage: 300-30mg
     Route: 048
  5. GLYBURIDE [Concomitant]
     Indication: DIABETES MELLITUS
     Route: 048
  6. DIGOXIN [Concomitant]
     Indication: CARDIAC DISORDER
     Route: 048
  7. CALCIUM AND VITAMIN D3 [Concomitant]
     Route: 048
  8. AZATHIOPRINE [Concomitant]
     Indication: CROHN^S DISEASE
     Route: 048
  9. ZOLPIDEM [Concomitant]
     Indication: SLEEP DISORDER
     Route: 048
  10. METFORMIN [Concomitant]
     Indication: DIABETES MELLITUS
     Route: 048
  11. PROMETHAZINE [Concomitant]
     Indication: NAUSEA
     Route: 048
  12. LISINOPRIL [Concomitant]
     Indication: BLOOD PRESSURE
     Route: 048
  13. FUROSEMIDE [Concomitant]
     Indication: DIURETIC THERAPY
     Route: 048

REACTIONS (5)
  - Local swelling [Not Recovered/Not Resolved]
  - Poor venous access [Not Recovered/Not Resolved]
  - Eating disorder [Not Recovered/Not Resolved]
  - Nausea [Not Recovered/Not Resolved]
  - Infusion site pain [Not Recovered/Not Resolved]
